FAERS Safety Report 5175573-4 (Version None)
Quarter: 2006Q4

REPORT INFORMATION
  Report Type: 
  Country: None (occurrence: None)
  Receive Date: 20061212
  Receipt Date: 20061212
  Transmission Date: 20070319
  Serious: Yes (Life-Threatening, Hospitalization)
  Sender: FDA-Public Use
  Company Number: None

PATIENT
  Sex: Female

DRUGS (2)
  1. CARBOPLATIN [Suspect]
     Indication: OVARIAN CANCER RECURRENT
     Dosage: 541MG EVERY 21 DAYS IV
     Route: 042
     Dates: start: 20061109, end: 20061130
  2. LAPATINIB [Suspect]
     Dosage: 750MG DAILY
     Dates: start: 20061110, end: 20061130

REACTIONS (5)
  - CARDIO-RESPIRATORY ARREST [None]
  - HYPOTENSION [None]
  - LOSS OF CONSCIOUSNESS [None]
  - NAUSEA [None]
  - PRURITUS [None]
